FAERS Safety Report 23201223 (Version 3)
Quarter: 2024Q1

REPORT INFORMATION
  Report Type: Other
  Country: US (occurrence: US)
  Receive Date: 20231118
  Receipt Date: 20240326
  Transmission Date: 20240409
  Serious: No
  Sender: FDA-Public Use
  Company Number: US-TRAVERE-2023TVT00537

PATIENT
  Age: 21 Year
  Sex: Female

DRUGS (2)
  1. FILSPARI [Suspect]
     Active Substance: SPARSENTAN
     Indication: IgA nephropathy
     Route: 048
     Dates: start: 20230914
  2. FILSPARI [Suspect]
     Active Substance: SPARSENTAN
     Indication: Haematuria
     Route: 048
     Dates: start: 202309

REACTIONS (5)
  - Headache [Unknown]
  - Eye swelling [Unknown]
  - Pruritus [Unknown]
  - Rash papular [Unknown]
  - Rash macular [Unknown]

NARRATIVE: CASE EVENT DATE: 20230914
